APPROVED DRUG PRODUCT: TRAVASOL 10% IN PLASTIC CONTAINER
Active Ingredient: AMINO ACIDS
Strength: 10% (10MG/100ML)
Dosage Form/Route: INJECTABLE;INJECTION
Application: N018931 | Product #003
Applicant: BAXTER HEALTHCARE CORP
Approved: Aug 23, 1984 | RLD: No | RS: No | Type: RX